FAERS Safety Report 7732656-X (Version None)
Quarter: 2011Q3

REPORT INFORMATION
  Report Type: 
  Country: None (occurrence: None)
  Receive Date: 20110907
  Receipt Date: 20110901
  Transmission Date: 20111222
  Serious: Yes (Hospitalization, Other)
  Sender: FDA-Public Use
  Company Number: AU-BIOGENIDEC-2011BI016711

PATIENT
  Sex: Female

DRUGS (6)
  1. TYROXINE [Concomitant]
     Route: 065
  2. ACETAMINOPHEN AND CODEINE PHOSPHATE [Concomitant]
  3. TYSABRI [Suspect]
     Indication: MULTIPLE SCLEROSIS
     Route: 042
     Dates: start: 20090901, end: 20100901
  4. INDERAL [Concomitant]
     Route: 065
  5. RENITEC PLUS [Concomitant]
     Route: 065
  6. FLUOXETINE [Concomitant]
     Route: 065

REACTIONS (1)
  - MESOTHELIOMA [None]
